FAERS Safety Report 15934731 (Version 2)
Quarter: 2019Q1

REPORT INFORMATION
  Report Type: Report from Study
  Country: EG (occurrence: EG)
  Receive Date: 20190207
  Receipt Date: 20190222
  Transmission Date: 20190417
  Serious: Yes (Hospitalization)
  Sender: FDA-Public Use
  Company Number: PHHY2019EG025345

PATIENT
  Age: 73 Year
  Sex: Female

DRUGS (4)
  1. GLIVEC [Suspect]
     Active Substance: IMATINIB MESYLATE
     Indication: CHRONIC MYELOID LEUKAEMIA
     Dosage: 400 MG, QD
     Route: 048
     Dates: start: 201705, end: 20181027
  2. TORSERETIC [Concomitant]
     Indication: PRODUCT USED FOR UNKNOWN INDICATION
     Dosage: 1 DF, QD
     Route: 065
     Dates: start: 1995
  3. NEVILOB [Concomitant]
     Indication: PRODUCT USED FOR UNKNOWN INDICATION
     Dosage: 1 DF, QD
     Route: 065
     Dates: start: 20190123
  4. DIAMICRON [Concomitant]
     Active Substance: GLICLAZIDE
     Indication: PRODUCT USED FOR UNKNOWN INDICATION
     Dosage: 1 DF, QD
     Dates: start: 1995

REACTIONS (3)
  - Haemoglobin decreased [Recovered/Resolved]
  - Decreased immune responsiveness [Recovered/Resolved]
  - Cytogenetic analysis abnormal [Unknown]

NARRATIVE: CASE EVENT DATE: 201705
